FAERS Safety Report 25855306 (Version 1)
Quarter: 2025Q3

REPORT INFORMATION
  Report Type: Spontaneous
  Country: US (occurrence: US)
  Receive Date: 20250927
  Receipt Date: 20250927
  Transmission Date: 20251020
  Serious: Yes (Other)
  Sender: SANOFI AVENTIS
  Company Number: US-DialogSolutions-SAAVPROD-PI824319-C1

PATIENT
  Age: 67 Year
  Sex: Male

DRUGS (6)
  1. DUPILUMAB [Suspect]
     Active Substance: DUPILUMAB
     Indication: Dermatitis bullous
     Dosage: 300 MG, QOW
     Route: 058
  2. DEUCRAVACITINIB [Suspect]
     Active Substance: DEUCRAVACITINIB
     Indication: Dermatitis bullous
     Dosage: 6 MG, QD
     Route: 048
  3. CARBAMAZEPINE [Concomitant]
     Active Substance: CARBAMAZEPINE
     Indication: Epilepsy
  4. LEVETIRACETAM [Concomitant]
     Active Substance: LEVETIRACETAM
     Indication: Epilepsy
  5. CORTICOSTEROID NOS [Concomitant]
     Active Substance: CORTICOSTEROID NOS
     Indication: Dermatitis bullous
     Route: 061
  6. RUXOLITINIB [Concomitant]
     Active Substance: RUXOLITINIB
     Indication: Dermatitis bullous
     Route: 061

REACTIONS (3)
  - Dermatitis bullous [Unknown]
  - Condition aggravated [Unknown]
  - Off label use [Unknown]
